FAERS Safety Report 7304068-4 (Version None)
Quarter: 2011Q1

REPORT INFORMATION
  Report Type: 
  Country: None (occurrence: None)
  Receive Date: 20110221
  Receipt Date: 20110210
  Transmission Date: 20110831
  Serious: Yes (Other)
  Sender: FDA-Public Use
  Company Number: PHHY2011US11645

PATIENT
  Sex: Female

DRUGS (1)
  1. RECLAST [Suspect]
     Indication: OSTEOPOROSIS POSTMENOPAUSAL
     Dosage: UNK
     Dates: start: 20110125

REACTIONS (6)
  - AGITATION [None]
  - BONE PAIN [None]
  - MUSCULOSKELETAL DISORDER [None]
  - PAIN OF SKIN [None]
  - HYPERHIDROSIS [None]
  - MYALGIA [None]
